FAERS Safety Report 8839362 (Version 1)
Quarter: 2012Q4

REPORT INFORMATION
  Report Type: Spontaneous
  Country: US (occurrence: None)
  Receive Date: 20121012
  Receipt Date: 20121012
  Transmission Date: 20130627
  Serious: Yes (Other)
  Sender: FDA-Public Use
  Company Number: None

PATIENT
  Age: 67 Year
  Sex: Male
  Weight: 106.6 kg

DRUGS (1)
  1. IMIQUIMOD [Suspect]
     Dosage: .25g 2x week top
     Route: 061
     Dates: start: 20120901, end: 20121010

REACTIONS (4)
  - Pruritus [None]
  - Skin exfoliation [None]
  - Impaired healing [None]
  - Laceration [None]
